FAERS Safety Report 17950514 (Version 2)
Quarter: 2021Q3

REPORT INFORMATION
  Report Type: Other
  Country: JP (occurrence: JP)
  Receive Date: 20200626
  Receipt Date: 20210909
  Transmission Date: 20211014
  Serious: Yes (Other)
  Sender: FDA-Public Use
  Company Number: JP-ROCHE-2629374

PATIENT

DRUGS (3)
  1. VEMURAFENIB. [Suspect]
     Active Substance: VEMURAFENIB
     Indication: NEOPLASM MALIGNANT
     Route: 065
  2. ERLOTINIB [Suspect]
     Active Substance: ERLOTINIB
     Indication: NEOPLASM MALIGNANT
     Route: 048
  3. ALECTINIB. [Suspect]
     Active Substance: ALECTINIB
     Indication: NEOPLASM MALIGNANT
     Route: 065

REACTIONS (4)
  - Electrocardiogram QT prolonged [Unknown]
  - Arrhythmia [Unknown]
  - Myocardial ischaemia [Unknown]
  - Cardiac failure [Unknown]
